FAERS Safety Report 17151410 (Version 13)
Quarter: 2020Q3

REPORT INFORMATION
  Report Type: Report from Study
  Country: JP (occurrence: JP)
  Receive Date: 20191213
  Receipt Date: 20200923
  Transmission Date: 20201102
  Serious: Yes (Life-Threatening)
  Sender: FDA-Public Use
  Company Number: JP-ROCHE-2494706

PATIENT
  Age: 68 Year
  Sex: Male
  Weight: 71.2 kg

DRUGS (24)
  1. OLANZAPINE. [Concomitant]
     Active Substance: OLANZAPINE
     Indication: NAUSEA
     Dates: start: 20191129, end: 20191206
  2. LEVOFLOXACIN. [Concomitant]
     Active Substance: LEVOFLOXACIN
     Dates: end: 20191219
  3. METOCLOPRAMIDE. [Concomitant]
     Active Substance: METOCLOPRAMIDE
     Indication: DECREASED APPETITE
  4. ESOMEPRAZOLE MAGNESIUM DIHYDRATE [Concomitant]
     Active Substance: ESOMEPRAZOLE MAGNESIUM
     Indication: GASTRITIS
     Dates: start: 20191202, end: 20191206
  5. ACELIO [Concomitant]
     Active Substance: ACETAMINOPHEN
     Indication: PYREXIA
     Route: 042
     Dates: start: 20191206, end: 20191211
  6. DEXAMETHASONE. [Concomitant]
     Active Substance: DEXAMETHASONE
     Route: 048
     Dates: start: 20191126, end: 20191128
  7. ATEZOLIZUMAB. [Suspect]
     Active Substance: ATEZOLIZUMAB
     Indication: NON-SMALL CELL LUNG CANCER
     Dosage: ON DAY 1 OF EACH 21 DAY CYCLE FOR 4 CYCLES?MOST RECENT DOSE PRIOR TO THE EVENT ON 25/NOV/2019
     Route: 041
     Dates: start: 20191125
  8. FAMOTIDINE. [Concomitant]
     Active Substance: FAMOTIDINE
     Dates: start: 20191125, end: 20191125
  9. MAGNESIUM SULFATE. [Concomitant]
     Active Substance: MAGNESIUM SULFATE
     Dosage: 1MEQ/ML
     Dates: start: 20191125, end: 20191125
  10. LACTEC D [Concomitant]
     Indication: DECREASED APPETITE
  11. PLATELETS [Concomitant]
     Active Substance: HUMAN PLATELET, ALLOGENIC
     Dosage: DOSE: 10 UNITS
  12. VANCOMYCIN [Concomitant]
     Active Substance: VANCOMYCIN
     Dates: end: 20200127
  13. PEMETREXED. [Suspect]
     Active Substance: PEMETREXED
     Indication: NON-SMALL CELL LUNG CANCER
     Dosage: ON DAY 1 OF EACH 21 DAY CYCLE FOR 4 CYCLES?MOST RECENT DOSE PRIOR TO THE EVENT ON 25/NOV/2019 (906 M
     Route: 042
     Dates: start: 20191125
  14. PALONOSETRON HYDROCHLORIDE. [Concomitant]
     Active Substance: PALONOSETRON HYDROCHLORIDE
     Dates: start: 20191125, end: 20191125
  15. D MANNITOL [Concomitant]
     Dates: start: 20191125, end: 20191125
  16. METOCLOPRAMIDE. [Concomitant]
     Active Substance: METOCLOPRAMIDE
     Indication: HICCUPS
     Dates: start: 20191128, end: 20191201
  17. ACETAMINOPHEN. [Concomitant]
     Active Substance: ACETAMINOPHEN
     Indication: PYREXIA
     Dates: start: 20191104, end: 20191206
  18. DOMPERIDONE [Concomitant]
     Active Substance: DOMPERIDONE
     Indication: NAUSEA
     Dates: start: 20191202, end: 20191202
  19. TAZOPIPE [Concomitant]
     Active Substance: PIPERACILLIN SODIUM\TAZOBACTAM SODIUM
     Indication: PYREXIA
     Dates: start: 20191205, end: 20191208
  20. CISPLATIN. [Suspect]
     Active Substance: CISPLATIN
     Indication: NON-SMALL CELL LUNG CANCER
     Dosage: ON DAY 1 OF EACH 21 DAY CYCLE FOR 4 CYCLES?MOST RECENT DOSE PRIOR TO THE EVENT ON 25/NOV/2019 (135 M
     Route: 042
     Dates: start: 20191125
  21. APREPITANT. [Concomitant]
     Active Substance: APREPITANT
     Dates: start: 20191125, end: 20191127
  22. METOCLOPRAMIDE. [Concomitant]
     Active Substance: METOCLOPRAMIDE
     Indication: NAUSEA
  23. LACTEC D [Concomitant]
     Indication: NAUSEA
     Dates: start: 20191130
  24. DEXAMETHASONE SODIUM PHOSPHATE. [Concomitant]
     Active Substance: DEXAMETHASONE SODIUM PHOSPHATE
     Route: 042
     Dates: start: 20191125, end: 20191125

REACTIONS (1)
  - Duodenal ulcer haemorrhage [Recovering/Resolving]

NARRATIVE: CASE EVENT DATE: 20191207
